FAERS Safety Report 10445207 (Version 2)
Quarter: 2014Q3

REPORT INFORMATION
  Report Type: Spontaneous
  Country: PL (occurrence: PL)
  Receive Date: 20140910
  Receipt Date: 20140915
  Transmission Date: 20150326
  Serious: Yes (Other)
  Sender: FDA-Public Use
  Company Number: PHHY2014PL108886

PATIENT
  Age: 47 Year
  Sex: Male
  Weight: 108 kg

DRUGS (7)
  1. VALPROATE [Suspect]
     Active Substance: VALPROIC ACID
     Indication: ARTHROPATHY
     Dosage: 1000 MG, UNK
     Route: 048
  2. TEGRETOL [Suspect]
     Active Substance: CARBAMAZEPINE
     Indication: ARTHROPATHY
     Dosage: 800 MG, UNK
     Route: 048
  3. METEX [Suspect]
     Active Substance: METFORMIN HYDROCHLORIDE
     Indication: EPILEPSY
     Dosage: 25 MG, QW
     Route: 058
     Dates: start: 201209, end: 20130509
  4. NOLPAZA [Concomitant]
     Active Substance: PANTOPRAZOLE SODIUM
     Dosage: 20 MG, QW
     Route: 048
     Dates: start: 201209
  5. METEX [Suspect]
     Active Substance: METFORMIN HYDROCHLORIDE
     Indication: ARTHROPATHY
  6. DICLAC [Suspect]
     Active Substance: DICLOFENAC POTASSIUM
     Indication: ARTHROPATHY
     Dosage: 100 MG, UNK
     Route: 048
  7. METYPRED//METHYLPREDNISOLONE [Concomitant]
     Active Substance: METHYLPREDNISOLONE
     Indication: ARTHRITIS ENTEROPATHIC
     Route: 048
     Dates: start: 201209

REACTIONS (6)
  - Transaminases increased [Recovered/Resolved]
  - Nausea [Recovered/Resolved]
  - Leukopenia [Recovered/Resolved]
  - Leukocytosis [Recovered/Resolved]
  - Malaise [Recovered/Resolved]
  - Fatigue [Recovered/Resolved]

NARRATIVE: CASE EVENT DATE: 20121119
